FAERS Safety Report 8620097-2 (Version None)
Quarter: 2012Q3

REPORT INFORMATION
  Report Type: 
  Country: None (occurrence: None)
  Receive Date: 20120816
  Receipt Date: 20120816
  Transmission Date: 20120928
  Serious: Yes (Other)
  Sender: FDA-Public Use
  Company Number: None

PATIENT
  Sex: Female
  Weight: 68.0396 kg

DRUGS (2)
  1. LEVOFLOXACIN [Suspect]
     Indication: EAR DISORDER
     Dosage: 1 PILL, 1 X PER DAY, PO
     Route: 048
     Dates: start: 20120605, end: 20120615
  2. LEVOFLOXACIN [Suspect]
     Indication: SINUSITIS
     Dosage: 1 PILL, 1 X PER DAY, PO
     Route: 048
     Dates: start: 20120605, end: 20120615

REACTIONS (8)
  - PAIN [None]
  - INSOMNIA [None]
  - FATIGUE [None]
  - MYALGIA [None]
  - PARAESTHESIA [None]
  - DYSPNOEA [None]
  - ARTHRALGIA [None]
  - FLUSHING [None]
